FAERS Safety Report 7833711-6 (Version None)
Quarter: 2011Q4

REPORT INFORMATION
  Report Type: 
  Country: None (occurrence: None)
  Receive Date: 20111024
  Receipt Date: 20111019
  Transmission Date: 20120403
  Serious: Yes (Death, Hospitalization)
  Sender: FDA-Public Use
  Company Number: FR-SANOFI-AVENTIS-2011SA041124

PATIENT
  Age: 65 Year
  Sex: Male

DRUGS (4)
  1. MEDIATOR [Suspect]
     Route: 048
     Dates: start: 19870101, end: 20020309
  2. FUROSEMIDE [Suspect]
     Route: 048
     Dates: start: 19990801, end: 20020301
  3. ALLOPURINOL [Suspect]
     Route: 048
     Dates: start: 20011001, end: 20020301
  4. ADALAT [Suspect]
     Route: 048
     Dates: start: 19970101, end: 20020301

REACTIONS (3)
  - INFECTIOUS PERITONITIS [None]
  - GASTRIC ULCER [None]
  - ASCITES [None]
